FAERS Safety Report 17113930 (Version 1)
Quarter: 2019Q4

REPORT INFORMATION
  Report Type: Spontaneous
  Country: GB (occurrence: GB)
  Receive Date: 20191205
  Receipt Date: 20191205
  Transmission Date: 20200122
  Serious: Yes (Other)
  Sender: FDA-Public Use
  Company Number: GB-TEVA-2019-GB-1146684

PATIENT
  Age: 93 Year
  Sex: Male
  Weight: 58 kg

DRUGS (31)
  1. HALOPERIDOL. [Concomitant]
     Active Substance: HALOPERIDOL
     Dosage: 0.5-1.5MG SC EVERY 8 HOURS AS REQUIRED FOR NAUS...
     Route: 058
     Dates: start: 20190916, end: 20190921
  2. PARACETAMOL [Concomitant]
     Active Substance: ACETAMINOPHEN
     Dosage: 2000 MG
     Dates: start: 20190723
  3. GOSERELIN [Concomitant]
     Active Substance: GOSERELIN
     Dosage: 10.8 MG PER 12 WEEK
     Dates: start: 20191004, end: 20191014
  4. LORAZEPAM. [Concomitant]
     Active Substance: LORAZEPAM
     Dosage: 0.5 MG
     Dates: start: 20190723
  5. TERBUTALINE [Concomitant]
     Active Substance: TERBUTALINE
     Dosage: INHALE 1 DF
     Route: 055
     Dates: start: 20190723
  6. ADCAL [Concomitant]
     Dosage: 2 DF
     Dates: start: 20190723
  7. FLUCLOXACILLIN [Concomitant]
     Active Substance: FLUCLOXACILLIN
     Dosage: 4 DF
     Dates: start: 20190725, end: 20190801
  8. NUTRITIONAL SUPPLEMENT [Concomitant]
     Active Substance: DIETARY SUPPLEMENT
     Dosage: 400 ML
     Dates: start: 20190828, end: 20190911
  9. HYOSCINE BUTYLBROMIDE [Concomitant]
     Active Substance: BUTYLSCOPOLAMINE BROMIDE
     Dosage: 20 MG UP TO EVERY 4HRS FOR SECRETIONS A...
     Route: 058
     Dates: start: 20190916, end: 20190917
  10. OMEPRAZOLE. [Concomitant]
     Active Substance: OMEPRAZOLE
     Dosage: 20 MG
     Dates: start: 20190723
  11. PIVMECILLINAM [Concomitant]
     Active Substance: AMDINOCILLIN PIVOXIL
     Dosage: TAKE TWO TO START OFF WITH THE ONE THREE TIMES A DAY FOR A WEEK
     Dates: start: 20191023
  12. AMOXICILLIN. [Concomitant]
     Active Substance: AMOXICILLIN
     Dosage: 3 DF
     Dates: start: 20190918, end: 20190923
  13. HYPROMELLOSE [Concomitant]
     Active Substance: HYPROMELLOSES
     Dosage: 1 DF DROP
     Dates: start: 20190807, end: 20190807
  14. CASSIA [Concomitant]
     Dosage: 15 MILLIGRAM DAILY; 15 MG AT NIGHT
     Dates: start: 20190723
  15. INCRUSE ELLIPTA [Concomitant]
     Active Substance: UMECLIDINIUM BROMIDE
     Dosage: 1 DOSAGE FORMS DAILY; 1 DF TAKE IN MORNING
     Route: 055
     Dates: start: 20190723
  16. GLYCERYL TRINITRATE [Concomitant]
     Active Substance: NITROGLYCERIN
     Dosage: 1 DF SPRAY
     Dates: start: 20190723
  17. RELVAR ELLIPTA [Concomitant]
     Active Substance: FLUTICASONE FUROATE\VILANTEROL TRIFENATATE
     Dosage: 1 DF PUFF, IN MORNING
     Dates: start: 20190723
  18. DIGOXIN. [Concomitant]
     Active Substance: DIGOXIN
     Dosage: 125 MCG
     Dates: start: 20190723
  19. NUTRITIONAL SUPPLEMENT [Concomitant]
     Active Substance: DIETARY SUPPLEMENT
     Dosage: 2 DF
     Dates: start: 20190723
  20. LAXIDO [Concomitant]
     Active Substance: POLYETHYLENE GLYCOL 3350\POTASSIUM CHLORIDE\SODIUM BICARBONATE\SODIUM CHLORIDE
     Dosage: 2 DF SACHET
     Dates: start: 20190723
  21. FUROSEMIDE. [Concomitant]
     Active Substance: FUROSEMIDE
     Dosage: 40 MG
     Dates: start: 20190828
  22. TRIMETHOPRIM. [Suspect]
     Active Substance: TRIMETHOPRIM
     Dosage: 400 MG FOR 7 DAYS
     Dates: start: 20191023
  23. MIDAZOLAM [Concomitant]
     Active Substance: MIDAZOLAM HYDROCHLORIDE
     Dosage: 2.5-5MG SC EVERY TWO HOURS AS REQUIRED FOR SEDA...
     Route: 058
     Dates: start: 20190916, end: 20190921
  24. APIXABAN [Concomitant]
     Active Substance: APIXABAN
     Dosage: 2 DF
     Dates: start: 20190723, end: 20190903
  25. BISOPROLOL [Concomitant]
     Active Substance: BISOPROLOL
     Dosage: 2.5 MG
     Route: 048
     Dates: start: 20190723
  26. FLUAD NOS [Concomitant]
     Active Substance: INFLUENZA VIRUS VACCINE
     Dosage: USE AS DIRECTED
     Dates: start: 20191022, end: 20191022
  27. CETIRIZINE [Concomitant]
     Active Substance: CETIRIZINE HYDROCHLORIDE
     Dosage: 1 DF
     Dates: start: 20190807, end: 20190906
  28. E45 [Concomitant]
     Active Substance: LANOLIN\LIGHT MINERAL OIL\PARAFFIN
     Dosage: APPLY 2 DF
     Dates: start: 20191023
  29. DIAMORPHINE HYDROCHLORIDE [Concomitant]
     Active Substance: DIACETYLMORPHINE HYDROCHLORIDE
     Indication: PAIN
     Dosage: 2.5-5MG SC EVERY 2HOURS AS REQUIRED FOR PAIN AN...
     Route: 058
     Dates: start: 20190916, end: 20190919
  30. ANUSOL NOS [Concomitant]
     Active Substance: BALSAM PERU\BENZYL BENZOATE\BISMUTH HYDROXIDE\BISMUTH SUBGALLATE\HYDROCORTISONE ACETATE\ZINC OXIDE
     Dosage: APPLY TWICE A DAY AND AFTER EVERY BOWEL MOTION....
     Dates: start: 20191018
  31. WATER FOR INJECTION [Concomitant]
     Active Substance: WATER
     Dosage: USE TO MIX WITH DRUGS IN SYRINGE DRIVER
     Dates: start: 20190916, end: 20190921

REACTIONS (2)
  - Abdominal pain [Recovered/Resolved]
  - Malaise [Recovered/Resolved]

NARRATIVE: CASE EVENT DATE: 20191023
